FAERS Safety Report 17830167 (Version 1)
Quarter: 2020Q2

REPORT INFORMATION
  Report Type: Spontaneous
  Country: MT (occurrence: MT)
  Receive Date: 20200527
  Receipt Date: 20200527
  Transmission Date: 20200714
  Serious: Yes (Other)
  Sender: FDA-Public Use
  Company Number: MT-MYLANLABS-2020M1051558

PATIENT
  Age: 91 Year
  Sex: Male

DRUGS (1)
  1. MEMANTINE. [Suspect]
     Active Substance: MEMANTINE
     Indication: COMPULSIVE HOARDING
     Dosage: 5 MILLIGRAM, QD
     Route: 065

REACTIONS (1)
  - Bradycardia [Recovered/Resolved]
